FAERS Safety Report 9276523 (Version 1)
Quarter: 2013Q2

REPORT INFORMATION
  Report Type: Spontaneous
  Country: US (occurrence: US)
  Receive Date: 20130507
  Receipt Date: 20130507
  Transmission Date: 20140414
  Serious: Yes (Hospitalization, Other)
  Sender: FDA-Public Use
  Company Number: US-JNJFOC-20130501216

PATIENT
  Age: 70 Year
  Sex: Female
  Weight: 74.39 kg

DRUGS (8)
  1. XARELTO [Suspect]
     Indication: ANTICOAGULANT THERAPY
     Route: 048
     Dates: start: 201110
  2. BISOPROLOL FUMARATE [Suspect]
     Indication: HEART RATE INCREASED
     Route: 065
     Dates: start: 2012
  3. TIKOSYN [Suspect]
     Indication: ATRIAL FIBRILLATION
     Route: 048
     Dates: start: 201111
  4. TIKOSYN [Suspect]
     Indication: ATRIAL FIBRILLATION
     Route: 048
     Dates: start: 201110
  5. PRADAXA [Suspect]
     Indication: ANTICOAGULANT THERAPY
     Route: 065
     Dates: start: 201110, end: 201110
  6. NIASPAN [Suspect]
     Indication: BLOOD CHOLESTEROL ABNORMAL
     Route: 048
  7. LOVAZA [Suspect]
     Indication: NUTRITIONAL SUPPLEMENTATION
     Route: 048
  8. ASPIRIN [Suspect]
     Indication: OSTEOARTHRITIS
     Route: 065
     Dates: start: 2005, end: 2011

REACTIONS (25)
  - Joint stiffness [Not Recovered/Not Resolved]
  - Accident [Unknown]
  - Atrial fibrillation [Unknown]
  - Immobile [Not Recovered/Not Resolved]
  - Bedridden [Not Recovered/Not Resolved]
  - Pain [Not Recovered/Not Resolved]
  - Nausea [Unknown]
  - Aggression [Unknown]
  - Skin irritation [Unknown]
  - Autoimmune disorder [Unknown]
  - Laboratory test abnormal [Unknown]
  - Treatment noncompliance [Unknown]
  - Mobility decreased [Unknown]
  - Asthma [Unknown]
  - Thyroid function test abnormal [Unknown]
  - Blood glucose increased [Unknown]
  - Cardiomegaly [Unknown]
  - Fall [Unknown]
  - Asthenia [Unknown]
  - General physical health deterioration [Unknown]
  - Somnolence [Unknown]
  - Abasia [Unknown]
  - Muscle spasms [Unknown]
  - Thinking abnormal [Unknown]
  - Drug ineffective [Unknown]
